FAERS Safety Report 16661149 (Version 6)
Quarter: 2020Q4

REPORT INFORMATION
  Report Type: Spontaneous
  Country: US (occurrence: US)
  Receive Date: 20190802
  Receipt Date: 20201119
  Transmission Date: 20210113
  Serious: Yes (Other)
  Sender: FDA-Public Use
  Company Number: US-PFIZER INC-2019331715

PATIENT
  Age: 69 Year
  Sex: Male
  Weight: 131.5 kg

DRUGS (16)
  1. HYGROTON [Concomitant]
     Active Substance: CHLORTHALIDONE
     Dosage: 25 MG, DAILY (MORNING)
     Route: 048
  2. EFFEXOR [Concomitant]
     Active Substance: VENLAFAXINE HYDROCHLORIDE
     Indication: ANXIETY
     Dosage: 75 MG, 2X/DAY (1 AM AND 1 PM)
  3. FERROUS SULFATE. [Concomitant]
     Active Substance: FERROUS SULFATE
     Dosage: 325 MG, DAILY
     Route: 048
  4. METFORMIN [Concomitant]
     Active Substance: METFORMIN HYDROCHLORIDE
     Dosage: 1000 MG, 2X/DAY (WITH MEALS MORNING, EVENING)
  5. ASPIRIN 81 [Concomitant]
     Active Substance: ASPIRIN
     Dosage: 81 MG, 1X/DAY
  6. PRILOSEC [Concomitant]
     Active Substance: OMEPRAZOLE MAGNESIUM
     Dosage: 20 MG, 1X/DAY (MORNING)
     Route: 048
  7. ZOCOR [Concomitant]
     Active Substance: SIMVASTATIN
     Dosage: 40 MG, DAILY ((40 MG TOTAL) BY MOUTH EVERY AM)
     Route: 048
  8. LYRICA [Suspect]
     Active Substance: PREGABALIN
     Indication: TYPE 2 DIABETES MELLITUS
     Dosage: 200 MG, 2X/DAY
     Route: 048
  9. PRINIVIL [Concomitant]
     Active Substance: LISINOPRIL
     Dosage: 5 MG, 1X/DAY (MORNING)
     Route: 048
  10. ATORVASTATIN [Concomitant]
     Active Substance: ATORVASTATIN
     Dosage: 40 MG, DAILY (40 MG TOTAL) BY MOUTH EVERY AM
     Route: 048
  11. KLONOPIN [Concomitant]
     Active Substance: CLONAZEPAM
     Dosage: 0.5 MG, 2X/DAY (MORNING, EVENING)
     Route: 048
  12. LYRICA [Suspect]
     Active Substance: PREGABALIN
     Indication: POLYNEUROPATHY
     Dosage: 150 MG, 2X/DAY (ONE IN MORNING AND ONE AT NIGHT BY MOUTH)
     Route: 048
     Dates: start: 2005
  13. HYTRIN [Concomitant]
     Active Substance: TERAZOSIN HYDROCHLORIDE
     Dosage: 10 MG, 1X/DAY (TAKE ONE CAPSULE BY MOUTH ONCE NIGHTLY)
     Route: 048
  14. LIDODERM [Concomitant]
     Active Substance: LIDOCAINE
     Dosage: UNK UNK, AS NEEDED
  15. SURFAK [Concomitant]
     Dosage: 240 MG, 2X/DAY (MORNING, EVENING)
     Route: 048
  16. ZESTRIL [Concomitant]
     Active Substance: LISINOPRIL
     Dosage: 5 MG, 1X/DAY (MORNING)
     Route: 048

REACTIONS (9)
  - Traumatic liver injury [Recovering/Resolving]
  - Fall [Not Recovered/Not Resolved]
  - Sleep disorder [Recovering/Resolving]
  - Contusion [Recovering/Resolving]
  - Rib fracture [Not Recovered/Not Resolved]
  - Malaise [Not Recovered/Not Resolved]
  - Chest pain [Unknown]
  - Pain [Recovering/Resolving]
  - Impaired driving ability [Recovering/Resolving]

NARRATIVE: CASE EVENT DATE: 2019
